FAERS Safety Report 21563364 (Version 1)
Quarter: 2022Q4

REPORT INFORMATION
  Report Type: Spontaneous
  Country: FR (occurrence: FR)
  Receive Date: 20221108
  Receipt Date: 20221108
  Transmission Date: 20230113
  Serious: Yes (Hospitalization)
  Sender: FDA-Public Use
  Company Number: FR-AFSSAPS-MP20223243

PATIENT
  Age: 67 Year
  Sex: Female
  Weight: 57 kg

DRUGS (9)
  1. CLOPIDOGREL [Suspect]
     Active Substance: CLOPIDOGREL BISULFATE
     Indication: Platelet aggregation inhibition
     Dosage: 75 MILLIGRAM, DAILY, 1CP OF 75MG EVERY NOON
     Route: 048
     Dates: start: 202110
  2. CLOPIDOGREL [Suspect]
     Active Substance: CLOPIDOGREL BISULFATE
     Indication: Angioplasty
  3. ELIQUIS [Suspect]
     Active Substance: APIXABAN
     Indication: Angioplasty
     Dosage: 5 MILLIGRAM, BID, 1 TABLET OF 5MG MORNING AND EVENING
     Route: 048
     Dates: start: 202110, end: 20220108
  4. ELIQUIS [Suspect]
     Active Substance: APIXABAN
     Indication: Atrial fibrillation
  5. DOLIPRANE [Concomitant]
     Active Substance: ACETAMINOPHEN
     Indication: Product used for unknown indication
     Dosage: 1 GRAM, QID, 2 CAPSULES OF 500MG EVERY 6 HOURS IF NEEDED
     Route: 065
  6. HYDROCHLOROTHIAZIDE [Concomitant]
     Active Substance: HYDROCHLOROTHIAZIDE
     Indication: Product used for unknown indication
     Dosage: 12.5 MILLIGRAM, DAILY, 1/2 CP OF 25MG EVERY MORNING
     Route: 048
  7. AMLODIPINE [Concomitant]
     Active Substance: AMLODIPINE BESYLATE
     Indication: Hypertension
     Dosage: 5 MILLIGRAM, DAILY, 1 CAPSULE OF 5MG EVERY NIGHT
     Route: 048
  8. ATORVASTATIN CALCIUM [Concomitant]
     Active Substance: ATORVASTATIN CALCIUM
     Indication: Dyslipidaemia
     Dosage: 40 MILLIGRAM, DAILY, 1CP OF 40MG EVERY NIGHT
     Route: 048
  9. NICOPATCH 7 mg/24 h, dispositif transdermique de 17,5 mg/10 cm2 [Concomitant]
     Indication: Nicotine dependence
     Dosage: 7 MILLIGRAM, DAILY, 1 DEVICE PER DAY
     Route: 065

REACTIONS (1)
  - Gastrointestinal haemorrhage [Recovering/Resolving]

NARRATIVE: CASE EVENT DATE: 20220107
